FAERS Safety Report 16382198 (Version 1)
Quarter: 2019Q2

REPORT INFORMATION
  Report Type: Spontaneous
  Country: FR (occurrence: FR)
  Receive Date: 20190603
  Receipt Date: 20190603
  Transmission Date: 20190711
  Serious: Yes (Death)
  Sender: FDA-Public Use
  Company Number: FR-ACCORD-130702

PATIENT
  Age: 86 Year
  Sex: Male

DRUGS (5)
  1. CLOZAPINE. [Suspect]
     Active Substance: CLOZAPINE
     Route: 048
     Dates: start: 20190331, end: 20190331
  2. MIANSERIN [Suspect]
     Active Substance: MIANSERIN
     Route: 048
     Dates: start: 20190331, end: 20190331
  3. TAMSULOSIN/TAMSULOSIN HYDROCHLORIDE [Concomitant]
     Route: 048
     Dates: start: 20190331, end: 20190331
  4. ANAFRANIL [Suspect]
     Active Substance: CLOMIPRAMINE HYDROCHLORIDE
     Dosage: 75 MG, SCORED FILM-COATED TABLET
     Route: 048
     Dates: start: 20190331, end: 20190331
  5. PANTOPRAZOLE [Concomitant]
     Active Substance: PANTOPRAZOLE
     Route: 048
     Dates: start: 20190331, end: 20190331

REACTIONS (4)
  - Pneumonia aspiration [Fatal]
  - Coma [Fatal]
  - Wrong patient received product [Fatal]
  - Wrong product administered [Fatal]

NARRATIVE: CASE EVENT DATE: 20190331
